FAERS Safety Report 19460861 (Version 5)
Quarter: 2021Q4

REPORT INFORMATION
  Report Type: Report from Study
  Country: JP (occurrence: JP)
  Receive Date: 20210625
  Receipt Date: 20211011
  Transmission Date: 20220303
  Serious: Yes (Other)
  Sender: FDA-Public Use
  Company Number: NVSJ2021JP009258

PATIENT
  Age: 18 Year
  Sex: Male
  Weight: 41.9 kg

DRUGS (9)
  1. ILARIS [Suspect]
     Active Substance: CANAKINUMAB
     Indication: Still^s disease
     Dosage: 172.5 MG, Q4W
     Route: 058
     Dates: start: 20180802, end: 20200819
  2. TACROLIMUS [Suspect]
     Active Substance: TACROLIMUS
     Indication: Still^s disease
     Dosage: 3 MG
     Route: 048
     Dates: start: 20180802
  3. IGURATIMOD [Suspect]
     Active Substance: IGURATIMOD
     Indication: Still^s disease
     Dosage: 25 MG
     Route: 048
     Dates: start: 20200131, end: 20200326
  4. IGURATIMOD [Suspect]
     Active Substance: IGURATIMOD
     Dosage: 50 MG
     Route: 048
     Dates: start: 20200327
  5. METHOTREXATE [Concomitant]
     Active Substance: METHOTREXATE
     Indication: Still^s disease
     Dosage: 14 MG, QW
     Route: 048
     Dates: start: 20180802, end: 20190131
  6. FOLIC ACID [Concomitant]
     Active Substance: FOLIC ACID
     Indication: Product used for unknown indication
     Dosage: 5 MG, QW
     Route: 048
     Dates: start: 20180802, end: 20190131
  7. PREDNISONE [Concomitant]
     Active Substance: PREDNISONE
     Indication: Still^s disease
     Dosage: 6 MG
     Route: 048
     Dates: start: 20180802, end: 20190117
  8. PREDNISONE [Concomitant]
     Active Substance: PREDNISONE
     Dosage: 5 MG
     Route: 048
     Dates: start: 20190118, end: 20200514
  9. PREDNISONE [Concomitant]
     Active Substance: PREDNISONE
     Dosage: 4 MG
     Route: 048
     Dates: start: 20200515

REACTIONS (5)
  - Staphylococcal infection [Recovering/Resolving]
  - Subcutaneous abscess [Recovering/Resolving]
  - Inflammation [Unknown]
  - Alopecia [Recovered/Resolved]
  - Rash [Recovering/Resolving]

NARRATIVE: CASE EVENT DATE: 20181011
